FAERS Safety Report 16039363 (Version 1)
Quarter: 2019Q1

REPORT INFORMATION
  Report Type: Spontaneous
  Country: GB (occurrence: GB)
  Receive Date: 20190306
  Receipt Date: 20190306
  Transmission Date: 20190418
  Serious: Yes (Death, Life-Threatening, Disabling, Other)
  Sender: FDA-Public Use
  Company Number: GB-TEVA-2019-GB-1018122

PATIENT
  Age: 37 Year
  Sex: Male
  Weight: 120.5 kg

DRUGS (4)
  1. AMITRIPTYLINE HYDROCHLORIDE. [Suspect]
     Active Substance: AMITRIPTYLINE HYDROCHLORIDE
     Indication: DEPRESSION
     Dosage: 3 DOSAGE FORMS DAILY; 3 AT NIGHT
     Route: 048
     Dates: start: 20060512, end: 20070519
  2. TRAMADOL HYDROCHLORIDE. [Suspect]
     Active Substance: TRAMADOL HYDROCHLORIDE
     Indication: PAIN IN EXTREMITY
     Dosage: 1-2 QDS PRN
     Route: 048
     Dates: start: 20070518, end: 20070519
  3. DICLOFENAC SODIUM. [Suspect]
     Active Substance: DICLOFENAC SODIUM
     Indication: PAIN IN EXTREMITY
     Dosage: 1 DOSAGE FORMS DAILY;
     Route: 048
     Dates: start: 20070518, end: 20070519
  4. DULOXETINE. [Suspect]
     Active Substance: DULOXETINE
     Indication: DEPRESSION
     Dosage: 1 DOSAGE FORMS DAILY;
     Dates: start: 20070404, end: 20070519

REACTIONS (1)
  - Sudden death [Fatal]

NARRATIVE: CASE EVENT DATE: 20070519
